FAERS Safety Report 26052078 (Version 2)
Quarter: 2025Q4

REPORT INFORMATION
  Report Type: Spontaneous
  Country: US (occurrence: US)
  Receive Date: 20251117
  Receipt Date: 20251224
  Transmission Date: 20260117
  Serious: No
  Sender: KARYOPHARM THERAPEUTICS
  Company Number: US-KARYOPHARM-2025KPT100937

PATIENT

DRUGS (24)
  1. SELINEXOR [Suspect]
     Active Substance: SELINEXOR
     Indication: Plasma cell myeloma
     Dosage: 100 MG WEEKLY
     Route: 048
     Dates: start: 2021
  2. SELINEXOR [Suspect]
     Active Substance: SELINEXOR
     Dosage: 100 MG WEEKLY
     Route: 048
     Dates: start: 20251020, end: 2025
  3. SELINEXOR [Suspect]
     Active Substance: SELINEXOR
     Dosage: 50 MG WEEKLY
     Route: 048
     Dates: start: 2025
  4. ADMELOG [Concomitant]
     Active Substance: INSULIN LISPRO
  5. ALLOPURINOL [Concomitant]
     Active Substance: ALLOPURINOL
  6. ASPIRIN [Concomitant]
     Active Substance: ASPIRIN
  7. ATORVASTATIN CALCIUM [Concomitant]
     Active Substance: ATORVASTATIN CALCIUM
  8. BACTRIM DS [Concomitant]
     Active Substance: SULFAMETHOXAZOLE\TRIMETHOPRIM
  9. DEXAMETHASONE [Concomitant]
     Active Substance: DEXAMETHASONE
  10. ENTRESTO [Concomitant]
     Active Substance: SACUBITRIL\VALSARTAN
  11. FARXIGA [Concomitant]
     Active Substance: DAPAGLIFLOZIN PROPANEDIOL
  12. FINASTERIDE [Concomitant]
     Active Substance: FINASTERIDE
  13. LEVOTHYROXINE SODIUM [Concomitant]
     Active Substance: LEVOTHYROXINE SODIUM
  14. LOSARTAN POTASSIUM [Concomitant]
     Active Substance: LOSARTAN POTASSIUM
  15. METOPROLOL SUCCINATE [Concomitant]
     Active Substance: METOPROLOL SUCCINATE
  16. NORCO [Concomitant]
     Active Substance: ACETAMINOPHEN\HYDROCODONE BITARTRATE
  17. INSULIN NOS [Concomitant]
     Active Substance: INSULIN NOS
  18. NOVOLOG [Concomitant]
     Active Substance: INSULIN ASPART
  19. OLANZAPINE [Concomitant]
     Active Substance: OLANZAPINE
  20. OMEPRAZOLE [Concomitant]
     Active Substance: OMEPRAZOLE
  21. TAMSULOSIN HYDROCHLORIDE [Concomitant]
     Active Substance: TAMSULOSIN HYDROCHLORIDE
  22. TRADJENTA [Concomitant]
     Active Substance: LINAGLIPTIN
  23. TRESIBA [Concomitant]
     Active Substance: INSULIN DEGLUDEC
  24. ZOFRAN [Concomitant]
     Active Substance: ONDANSETRON HYDROCHLORIDE

REACTIONS (2)
  - Nausea [Unknown]
  - Laboratory test abnormal [Unknown]
